FAERS Safety Report 16763242 (Version 1)
Quarter: 2019Q3

REPORT INFORMATION
  Report Type: Spontaneous
  Country: US (occurrence: US)
  Receive Date: 20190711
  Receipt Date: 20190711
  Transmission Date: 20191005
  Serious: Yes (Hospitalization)
  Sender: FDA-Public Use
  Company Number: None

PATIENT
  Age: 80 Year
  Sex: Female
  Weight: 63.5 kg

DRUGS (2)
  1. CARBOPLATIN. [Suspect]
     Active Substance: CARBOPLATIN
     Dates: end: 20150505
  2. TAXOL [Suspect]
     Active Substance: PACLITAXEL
     Dates: end: 20150505

REACTIONS (7)
  - Chronic obstructive pulmonary disease [None]
  - Subdural haematoma [None]
  - Cardiac failure [None]
  - Dyspnoea [None]
  - Atrial fibrillation [None]
  - Pneumonia [None]
  - Fall [None]

NARRATIVE: CASE EVENT DATE: 20181226
